FAERS Safety Report 24724014 (Version 2)
Quarter: 2025Q3

REPORT INFORMATION
  Report Type: Spontaneous
  Country: EU (occurrence: EU)
  Receive Date: 20241211
  Receipt Date: 20250803
  Transmission Date: 20251020
  Serious: Yes (Other)
  Sender: ALEXION PHARMACEUTICALS
  Company Number: EU-ASTRAZENECA-202412GLO008182GR

PATIENT
  Age: 45 Year
  Sex: Female
  Weight: 65 kg

DRUGS (7)
  1. QUETIAPINE FUMARATE [Suspect]
     Active Substance: QUETIAPINE FUMARATE
     Route: 065
  2. ABILIFY [Suspect]
     Active Substance: ARIPIPRAZOLE
     Indication: Bipolar disorder
     Dates: start: 20150101, end: 20240701
  3. LAMICTAL [Suspect]
     Active Substance: LAMOTRIGINE
     Indication: Bipolar disorder
  4. CLONAZEPAM [Suspect]
     Active Substance: CLONAZEPAM
     Indication: Bipolar disorder
  5. CLONAZEPAM [Suspect]
     Active Substance: CLONAZEPAM
  6. FLUCONAZOLE [Suspect]
     Active Substance: FLUCONAZOLE
  7. ESTRADIOL VALERATE\NORGESTREL [Suspect]
     Active Substance: ESTRADIOL VALERATE\NORGESTREL
     Route: 065

REACTIONS (9)
  - Fluid retention [Recovering/Resolving]
  - Lichen planus [Recovering/Resolving]
  - Cyst [Recovering/Resolving]
  - Generalised oedema [Recovering/Resolving]
  - Blood cholesterol increased [Recovering/Resolving]
  - Vomiting [Recovering/Resolving]
  - Flatulence [Recovering/Resolving]
  - Blood pressure decreased [Recovering/Resolving]
  - Polyp [Recovering/Resolving]

NARRATIVE: CASE EVENT DATE: 20150101
